FAERS Safety Report 23467253 (Version 3)
Quarter: 2024Q1

REPORT INFORMATION
  Report Type: Spontaneous
  Country: US (occurrence: US)
  Receive Date: 20240201
  Receipt Date: 20240321
  Transmission Date: 20240410
  Serious: No
  Sender: FDA-Public Use
  Company Number: US-PFIZER INC-PV202400013669

PATIENT
  Age: 63 Year
  Sex: Male

DRUGS (1)
  1. RETACRIT [Suspect]
     Active Substance: EPOETIN ALFA-EPBX
     Indication: Blood iron decreased
     Dosage: RETACRIT 10,000U/ML, 1 ML, INJECTED UNDER THE SKIN ONCE WEEKLY
     Route: 058

REACTIONS (6)
  - Drug ineffective [Unknown]
  - Off label use [Unknown]
  - Abdominal pain upper [Unknown]
  - Asthenia [Unknown]
  - Somnolence [Unknown]
  - Spinal muscular atrophy [Not Recovered/Not Resolved]
